FAERS Safety Report 12426952 (Version 1)
Quarter: 2016Q2

REPORT INFORMATION
  Report Type: Spontaneous
  Country: FR (occurrence: FR)
  Receive Date: 20160601
  Receipt Date: 20160601
  Transmission Date: 20160815
  Serious: Yes (Death, Life-Threatening, Other)
  Sender: FDA-Public Use
  Company Number: FR-CORDEN PHARMA LATINA S.P.A.-FR-2016COR000153

PATIENT
  Age: 66 Year
  Sex: Female

DRUGS (4)
  1. LOMUSTINE. [Suspect]
     Active Substance: LOMUSTINE
     Indication: DIFFUSE LARGE B-CELL LYMPHOMA
     Dosage: 200 MG/M2 ON DAY -7
     Route: 048
  2. MELPHALAN [Suspect]
     Active Substance: MELPHALAN
     Indication: DIFFUSE LARGE B-CELL LYMPHOMA
     Dosage: 140 MG/M2 ON DAY -2
     Route: 042
  3. ETOPOSIDE. [Suspect]
     Active Substance: ETOPOSIDE
     Indication: DIFFUSE LARGE B-CELL LYMPHOMA
     Dosage: 1600 MG/M2 (TOTAL DOSE), TWICE DAILY DIVIDED OVER 4 D FROM D -6 TO -3
     Route: 042
  4. ARA-C [Suspect]
     Active Substance: CYTARABINE
     Indication: DIFFUSE LARGE B-CELL LYMPHOMA
     Dosage: 2000 MG/M2 (TOTAL DOSE), TWICE DAILY DIVIDED OVER 4 D FROM D -6 TO -3
     Route: 042

REACTIONS (5)
  - Mucosal inflammation [Unknown]
  - Venoocclusive liver disease [Unknown]
  - Toxicity to various agents [Fatal]
  - Multiple organ dysfunction syndrome [Fatal]
  - Pneumonia cryptococcal [Unknown]
